FAERS Safety Report 17724783 (Version 1)
Quarter: 2020Q2

REPORT INFORMATION
  Report Type: Spontaneous
  Country: US (occurrence: US)
  Receive Date: 20200429
  Receipt Date: 20200429
  Transmission Date: 20200714
  Serious: No
  Sender: FDA-Public Use
  Company Number: US-JNJFOC-20200434166

PATIENT
  Sex: Female
  Weight: 83.99 kg

DRUGS (2)
  1. ELMIRON [Suspect]
     Active Substance: PENTOSAN POLYSULFATE SODIUM
     Indication: CYSTITIS INTERSTITIAL
     Route: 065
  2. RIMSO-50 [Concomitant]
     Active Substance: DIMETHYL SULFOXIDE
     Indication: CYSTITIS INTERSTITIAL
     Route: 065

REACTIONS (2)
  - Vision blurred [Unknown]
  - Product dose omission [Unknown]
